FAERS Safety Report 4814847-0 (Version None)
Quarter: 2005Q4

REPORT INFORMATION
  Report Type: 
  Country: None (occurrence: None)
  Receive Date: 20051027
  Receipt Date: 20051027
  Transmission Date: 20060501
  Serious: Yes (Hospitalization)
  Sender: FDA-Public Use
  Company Number: None

PATIENT
  Sex: Male
  Weight: 70 kg

DRUGS (5)
  1. ERLOTINIB [Suspect]
     Indication: COLON CANCER
     Dosage: 100MG QD ORAL
     Route: 048
     Dates: start: 20050708, end: 20051019
  2. FLUOROURACIL [Suspect]
     Indication: COLON CANCER
     Dosage: 250 IV BOLUS
     Route: 040
     Dates: start: 20050708, end: 20051014
  3. OXALIPLATIN (50MG/M2) D1 OF 14D CYCLE [Suspect]
     Indication: COLON CANCER
     Dosage: 50 IV
     Route: 042
     Dates: start: 20050708, end: 20051014
  4. AVASTIN [Suspect]
     Indication: COLON CANCER
     Dosage: 5 IV
     Route: 042
     Dates: start: 20050708, end: 20051014
  5. FLUOROURACIL [Suspect]
     Indication: COLON CANCER
     Dosage: 1600 CI IV
     Route: 042
     Dates: start: 20050708, end: 20051014

REACTIONS (10)
  - ANAEMIA [None]
  - ANOREXIA [None]
  - ASTHENIA [None]
  - CONFUSIONAL STATE [None]
  - DEHYDRATION [None]
  - DIARRHOEA [None]
  - FAILURE TO THRIVE [None]
  - LABORATORY TEST INTERFERENCE [None]
  - ORTHOSTATIC HYPOTENSION [None]
  - WEIGHT DECREASED [None]
